FAERS Safety Report 7315843-4 (Version None)
Quarter: 2011Q1

REPORT INFORMATION
  Report Type: 
  Country: None (occurrence: None)
  Receive Date: 20110217
  Receipt Date: 20110217
  Transmission Date: 20110831
  Serious: No
  Sender: FDA-Public Use
  Company Number: None

PATIENT
  Age: 72 Year
  Sex: Male
  Weight: 72.5755 kg

DRUGS (5)
  1. ZESTRIL [Interacting]
  2. MOTRIN [Concomitant]
  3. ZETIA [Concomitant]
  4. NIASPAN [Suspect]
     Indication: HYPERLIPIDAEMIA
     Dosage: ABOVE 1 QD O
     Route: 048
  5. ASA [Concomitant]

REACTIONS (3)
  - RHINITIS ALLERGIC [None]
  - EPISTAXIS [None]
  - CONDITION AGGRAVATED [None]
